FAERS Safety Report 4605845-0 (Version None)
Quarter: 2005Q1

REPORT INFORMATION
  Report Type: 
  Country: None (occurrence: None)
  Receive Date: 20050116
  Receipt Date: 20041116
  Transmission Date: 20050727
  Serious: Yes (Disabling)
  Sender: FDA-Public Use
  Company Number: HQWYE487516NOV04

PATIENT
  Sex: Female

DRUGS (1)
  1. EFFEXOR [Suspect]
     Dosage: 150 MG; ATTEMPTED TO WEAN OFF OCCASION; 37 MG 1X PER 2 DAY
     Dates: start: 19950101

REACTIONS (5)
  - DIARRHOEA [None]
  - DIZZINESS [None]
  - DRUG WITHDRAWAL SYNDROME [None]
  - NAUSEA [None]
  - PARAESTHESIA [None]
